FAERS Safety Report 5600190-9 (Version None)
Quarter: 2008Q1

REPORT INFORMATION
  Report Type: 
  Country: None (occurrence: None)
  Receive Date: 20080123
  Receipt Date: 20080111
  Transmission Date: 20080703
  Serious: Yes (Other)
  Sender: FDA-Public Use
  Company Number: IR-ROCHE-541020

PATIENT
  Age: 14 Year
  Sex: Male

DRUGS (1)
  1. CELLCEPT [Suspect]
     Route: 065

REACTIONS (9)
  - BLOOD CREATININE INCREASED [None]
  - BRONCHITIS [None]
  - CHEST INJURY [None]
  - LUNG DISORDER [None]
  - NASAL FLARING [None]
  - PYREXIA [None]
  - REFRACTION DISORDER [None]
  - RESPIRATORY DISTRESS [None]
  - VOMITING [None]
